FAERS Safety Report 24534220 (Version 1)
Quarter: 2024Q4

REPORT INFORMATION
  Report Type: Spontaneous
  Country: US (occurrence: US)
  Receive Date: 20241022
  Receipt Date: 20241022
  Transmission Date: 20250115
  Serious: No
  Sender: LUPIN
  Company Number: US-LUPIN PHARMACEUTICALS INC.-2024-10186

PATIENT

DRUGS (2)
  1. ALBUTEROL SULFATE [Suspect]
     Active Substance: ALBUTEROL SULFATE
     Indication: Post-acute COVID-19 syndrome
     Dosage: UNK, PRN (2 PUFFS EVERY 4 HOURS AS NEEDED)
  2. ALBUTEROL SULFATE [Suspect]
     Active Substance: ALBUTEROL SULFATE
     Indication: Cough

REACTIONS (4)
  - Productive cough [Unknown]
  - Wrong technique in product usage process [Unknown]
  - Off label use [Unknown]
  - Drug dose omission by device [Unknown]
